FAERS Safety Report 7820973-4 (Version None)
Quarter: 2011Q4

REPORT INFORMATION
  Report Type: 
  Country: None (occurrence: None)
  Receive Date: 20111018
  Receipt Date: 20111013
  Transmission Date: 20120403
  Serious: Yes (Other)
  Sender: FDA-Public Use
  Company Number: JP-ABBOTT-11P-087-0850294-00

PATIENT
  Sex: Male

DRUGS (13)
  1. CLARITHROMYCIN [Suspect]
  2. POTASSIUM L/ASPARTATE [Concomitant]
     Indication: PRODUCT USED FOR UNKNOWN INDICATION
     Route: 051
  3. TRIBENOSIDE/LIDOCAINE [Concomitant]
     Route: 061
  4. CLARITHROMYCIN [Suspect]
     Indication: PYREXIA
  5. VOGLIBOSE [Suspect]
     Indication: DIABETES MELLITUS
     Route: 048
  6. GLYBURIDE [Suspect]
     Route: 048
     Dates: start: 20110729, end: 20110811
  7. TULOBUTEROL [Concomitant]
     Indication: NASOPHARYNGITIS
     Route: 062
     Dates: start: 20110719, end: 20110724
  8. CLARITHROMYCIN [Suspect]
     Indication: NASOPHARYNGITIS
     Route: 051
     Dates: start: 20110719, end: 20110724
  9. CLARITHROMYCIN [Suspect]
     Indication: COUGH
  10. WARFARIN SODIUM [Concomitant]
     Indication: PRODUCT USED FOR UNKNOWN INDICATION
     Route: 051
  11. GLYBURIDE [Concomitant]
     Indication: PRODUCT USED FOR UNKNOWN INDICATION
  12. GLYBURIDE [Suspect]
     Indication: DIABETES MELLITUS
     Route: 051
     Dates: end: 20110728
  13. METILDIGOXIN [Concomitant]
     Indication: PRODUCT USED FOR UNKNOWN INDICATION
     Route: 051

REACTIONS (2)
  - DEPRESSED LEVEL OF CONSCIOUSNESS [None]
  - HYPOGLYCAEMIA [None]
